FAERS Safety Report 16662200 (Version 1)
Quarter: 2019Q3

REPORT INFORMATION
  Report Type: Report from Study
  Country: US (occurrence: US)
  Receive Date: 20190802
  Receipt Date: 20190802
  Transmission Date: 20191004
  Serious: No
  Sender: FDA-Public Use
  Company Number: US-EXELIXIS-CABO-19018489

PATIENT
  Age: 67 Year
  Sex: Male

DRUGS (4)
  1. MULTIVITAMINS, COMBINATIONS [Concomitant]
     Active Substance: VITAMINS
  2. GLUCOSAMINE [Concomitant]
     Active Substance: GLUCOSAMINE
  3. CABOMETYX [Suspect]
     Active Substance: CABOZANTINIB S-MALATE
     Indication: RENAL CANCER
     Dosage: 40 MG, UNK
     Dates: start: 201712
  4. SYNTHROID [Concomitant]
     Active Substance: LEVOTHYROXINE SODIUM

REACTIONS (4)
  - Fatigue [Unknown]
  - Diarrhoea [Unknown]
  - Hypertension [Recovered/Resolved]
  - Creatinine renal clearance increased [Unknown]

NARRATIVE: CASE EVENT DATE: 20190110
